FAERS Safety Report 8974361 (Version 2)
Quarter: 2013Q1

REPORT INFORMATION
  Report Type: Spontaneous
  Country: JP (occurrence: JP)
  Receive Date: 20121220
  Receipt Date: 20130102
  Transmission Date: 20140127
  Serious: Yes (Other)
  Sender: FDA-Public Use
  Company Number: JP-ASTELLAS-2012JP011833

PATIENT
  Age: 17 Year
  Sex: Male
  Weight: 73.5 kg

DRUGS (8)
  1. PROGRAF [Suspect]
     Indication: ALLOGENIC BONE MARROW TRANSPLANTATION THERAPY
     Dosage: UNK
     Route: 065
  2. PROGRAF [Suspect]
     Indication: ALLOGENIC BONE MARROW TRANSPLANTATION THERAPY
     Dosage: 0.5 MG, UID/QD
     Route: 048
  3. LEUNASE [Concomitant]
     Indication: CHEMOTHERAPY
     Route: 065
  4. PREDNISOLONE [Concomitant]
     Indication: CHEMOTHERAPY
     Dosage: 80 MG, UNKNOWN/D
     Route: 048
  5. PREDNISOLONE [Concomitant]
     Dosage: 40 MG, UNKNOWN/D
     Route: 048
  6. PREDNISOLONE [Concomitant]
     Dosage: UNK
     Route: 048
  7. INSULIN [Concomitant]
     Indication: HYPERGLYCAEMIA
     Dosage: UNK
     Route: 041
  8. METHOTREXATE [Concomitant]
     Dosage: UNK
     Route: 065

REACTIONS (3)
  - Drug ineffective [Unknown]
  - Graft versus host disease [Recovered/Resolved]
  - Diabetes mellitus [Recovered/Resolved]
